FAERS Safety Report 7315408-4 (Version None)
Quarter: 2011Q1

REPORT INFORMATION
  Report Type: 
  Country: None (occurrence: None)
  Receive Date: 20110225
  Receipt Date: 20110218
  Transmission Date: 20110831
  Serious: Yes (Other)
  Sender: FDA-Public Use
  Company Number: A0914433A

PATIENT
  Age: 53 Year
  Sex: Female

DRUGS (4)
  1. CADUET [Concomitant]
  2. REQUIP [Suspect]
     Indication: NEUROPATHY PERIPHERAL
     Dosage: 1MG PER DAY
     Route: 048
     Dates: start: 20101201
  3. LISINOPRIL [Concomitant]
  4. ACID REFLUX MED. [Concomitant]

REACTIONS (9)
  - MONOPLEGIA [None]
  - DYSSTASIA [None]
  - VOMITING [None]
  - INSOMNIA [None]
  - INCONTINENCE [None]
  - TREMOR [None]
  - RETCHING [None]
  - NAUSEA [None]
  - THROAT IRRITATION [None]
